FAERS Safety Report 5514709-X (Version None)
Quarter: 2007Q4

REPORT INFORMATION
  Report Type: 
  Country: None (occurrence: None)
  Receive Date: 20071113
  Receipt Date: 20071108
  Transmission Date: 20080405
  Serious: No
  Sender: FDA-Public Use
  Company Number: US-ELI_LILLY_AND_COMPANY-US200710003340

PATIENT
  Sex: Male
  Weight: 86.893 kg

DRUGS (2)
  1. CYMBALTA [Suspect]
     Dosage: 1 D/F, UNK
  2. CYMBALTA [Suspect]
     Dosage: 60 MG, 2/D

REACTIONS (1)
  - HEPATIC ENZYME INCREASED [None]
